FAERS Safety Report 16857423 (Version 3)
Quarter: 2023Q2

REPORT INFORMATION
  Report Type: Spontaneous
  Country: US (occurrence: US)
  Receive Date: 20190926
  Receipt Date: 20230406
  Transmission Date: 20230722
  Serious: Yes (Other)
  Sender: FDA-Public Use
  Company Number: US-GILEAD-2019-0429293

PATIENT
  Age: 42 Year
  Sex: Female
  Weight: 176.87 kg

DRUGS (33)
  1. TRUVADA [Suspect]
     Active Substance: EMTRICITABINE\TENOFOVIR DISOPROXIL FUMARATE
     Indication: HIV infection
     Dosage: UNK
     Route: 048
     Dates: start: 2009, end: 2016
  2. DESCOVY [Concomitant]
     Active Substance: EMTRICITABINE\TENOFOVIR ALAFENAMIDE FUMARATE
  3. BIKTARVY [Concomitant]
     Active Substance: BICTEGRAVIR SODIUM\EMTRICITABINE\TENOFOVIR ALAFENAMIDE FUMARATE
     Dosage: UNK
     Dates: start: 201806
  4. COMBIVIR [Concomitant]
     Active Substance: LAMIVUDINE\ZIDOVUDINE
  5. SUSTIVA [Concomitant]
     Active Substance: EFAVIRENZ
  6. VIRACEPT [Concomitant]
     Active Substance: NELFINAVIR MESYLATE
  7. ZYRTEC [Concomitant]
     Active Substance: CETIRIZINE HYDROCHLORIDE
  8. GABAPENTIN [Concomitant]
     Active Substance: GABAPENTIN
  9. MECLIZINE [Concomitant]
     Active Substance: MECLIZINE HYDROCHLORIDE
  10. ALBUTEROL SULFATE [Concomitant]
     Active Substance: ALBUTEROL SULFATE
  11. ASPIRIN [Concomitant]
     Active Substance: ASPIRIN
  12. AZELASTINE [Concomitant]
     Active Substance: AZELASTINE
  13. CLOBETASOL [Concomitant]
     Active Substance: CLOBETASOL
  14. CLOPIDOGREL [Concomitant]
     Active Substance: CLOPIDOGREL BISULFATE
  15. COD LIVER OIL [Concomitant]
     Active Substance: COD LIVER OIL
  16. VITAMINS [Concomitant]
     Active Substance: VITAMINS
  17. IRON [Concomitant]
     Active Substance: IRON
  18. DILTIAZEM [Concomitant]
     Active Substance: DILTIAZEM
  19. LOPERAMIDE HYDROCHLORIDE [Concomitant]
     Active Substance: LOPERAMIDE HYDROCHLORIDE
  20. PEPCID [Concomitant]
     Active Substance: FAMOTIDINE
  21. FERGON [Concomitant]
     Active Substance: FERROUS GLUCONATE
  22. FLORASTOR [LACTOBACILLUS ACIDOPHILUS] [Concomitant]
  23. LANTUS [Concomitant]
     Active Substance: INSULIN GLARGINE
  24. METFORMIN [Concomitant]
     Active Substance: METFORMIN HYDROCHLORIDE
  25. MONTELUKAST [Concomitant]
     Active Substance: MONTELUKAST SODIUM
  26. PROTONIX [Concomitant]
     Active Substance: PANTOPRAZOLE SODIUM
  27. MIRALAX [Concomitant]
     Active Substance: POLYETHYLENE GLYCOL 3350
  28. POTASSIUM CHLORIDE [Concomitant]
     Active Substance: POTASSIUM CHLORIDE
  29. COMPAZINE [Concomitant]
     Active Substance: PROCHLORPERAZINE MALEATE
  30. MAGNESIUM CHLORIDE [Concomitant]
     Active Substance: MAGNESIUM CHLORIDE
  31. CALCIUM [Concomitant]
     Active Substance: CALCIUM
  32. CHOLECALCIFEROL [Concomitant]
     Active Substance: CHOLECALCIFEROL
  33. MAGNESIUM [Concomitant]
     Active Substance: MAGNESIUM

REACTIONS (12)
  - Osteoporosis [Not Recovered/Not Resolved]
  - Pain [Not Recovered/Not Resolved]
  - Emotional distress [Not Recovered/Not Resolved]
  - Loss of personal independence in daily activities [Not Recovered/Not Resolved]
  - Anxiety [Not Recovered/Not Resolved]
  - Anhedonia [Not Recovered/Not Resolved]
  - Economic problem [Not Recovered/Not Resolved]
  - Gait disturbance [Not Recovered/Not Resolved]
  - Arthropathy [Unknown]
  - Bone density decreased [Not Recovered/Not Resolved]
  - Mobility decreased [Not Recovered/Not Resolved]
  - Arthritis [Unknown]

NARRATIVE: CASE EVENT DATE: 20100101
